FAERS Safety Report 4552095-2 (Version None)
Quarter: 2004Q4

REPORT INFORMATION
  Report Type: 
  Country: None (occurrence: None)
  Receive Date: 20041217
  Receipt Date: 20041014
  Transmission Date: 20050328
  Serious: No
  Sender: FDA-Public Use
  Company Number: 2004-BP-09943BP

PATIENT
  Age: 75 Year
  Sex: Male

DRUGS (5)
  1. SPIRIVA [Suspect]
     Indication: CHRONIC OBSTRUCTIVE AIRWAYS DISEASE
     Dosage: 18 MCG (18 MCG); IH
     Route: 055
     Dates: start: 20040401
  2. SPIRIVA [Suspect]
  3. SPIRIVA [Suspect]
  4. ADAVAIR (SERETIDE MITE) [Concomitant]
  5. ALBUTEROL [Concomitant]

REACTIONS (2)
  - CHAPPED LIPS [None]
  - DRY MOUTH [None]
